FAERS Safety Report 8229119-4 (Version None)
Quarter: 2012Q1

REPORT INFORMATION
  Report Type: 
  Country: None (occurrence: None)
  Receive Date: 20120322
  Receipt Date: 20120316
  Transmission Date: 20120608
  Serious: Yes (Other)
  Sender: FDA-Public Use
  Company Number: FR-PFIZER INC-2012063357

PATIENT
  Age: 25 Year
  Sex: Male

DRUGS (3)
  1. PENICILLIN G [Concomitant]
  2. BACLOFEN [Concomitant]
  3. VANCOMYCIN HCL [Suspect]

REACTIONS (2)
  - RESPIRATORY DISTRESS [None]
  - DRUG RASH WITH EOSINOPHILIA AND SYSTEMIC SYMPTOMS [None]
